FAERS Safety Report 5214650-6 (Version None)
Quarter: 2007Q1

REPORT INFORMATION
  Report Type: 
  Country: None (occurrence: None)
  Receive Date: 20061108
  Receipt Date: 20060428
  Transmission Date: 20070707
  Serious: Yes (Hospitalization, Other)
  Sender: FDA-Public Use
  Company Number: US200604001633

PATIENT
  Age: 23 Year
  Sex: Female

DRUGS (4)
  1. PROZAC [Suspect]
  2. RISPERIDONE [Concomitant]
  3. MOTRIN [Concomitant]
  4. GEODON [Concomitant]

REACTIONS (6)
  - DRUG EXPOSURE DURING PREGNANCY [None]
  - EXTRAPYRAMIDAL DISORDER [None]
  - GRIMACING [None]
  - INTENTIONAL OVERDOSE [None]
  - PYREXIA [None]
  - TONGUE DISORDER [None]
